FAERS Safety Report 16409220 (Version 15)
Quarter: 2023Q2

REPORT INFORMATION
  Report Type: Report from Study
  Country: IT (occurrence: None)
  Receive Date: 20190610
  Receipt Date: 20230411
  Transmission Date: 20230721
  Serious: Yes (Hospitalization)
  Sender: FDA-Public Use
  Company Number: IT-ROCHE-2332223

PATIENT
  Age: 48 Year
  Sex: Female
  Weight: 72 kg

DRUGS (55)
  1. OCRELIZUMAB [Suspect]
     Active Substance: OCRELIZUMAB
     Indication: Progressive multiple sclerosis
     Dosage: ON 22/MAR/2019 AT 13:24 , THE PATIENT RECEIVED MOST RECENT DOSE
     Route: 042
     Dates: start: 20190322
  2. LIORESAL [Concomitant]
     Active Substance: BACLOFEN
     Route: 048
     Dates: start: 2018
  3. DICLOFENAC SODIUM [Concomitant]
     Active Substance: DICLOFENAC SODIUM
     Indication: Back pain
     Route: 048
     Dates: start: 2018, end: 20211014
  4. MAGNESIUM [Concomitant]
     Active Substance: MAGNESIUM
     Indication: Back pain
     Route: 048
     Dates: start: 2018, end: 20211014
  5. MAGNESIUM [Concomitant]
     Active Substance: MAGNESIUM
     Dosage: 1 SACHET
     Route: 048
     Dates: start: 20211020
  6. POTASSIUM [Concomitant]
     Active Substance: POTASSIUM
     Indication: Back pain
     Route: 048
     Dates: start: 2018, end: 20211014
  7. POTASSIUM [Concomitant]
     Active Substance: POTASSIUM
     Dosage: 1 SACHET
     Route: 048
     Dates: start: 20211020
  8. FINDERM [Concomitant]
     Dosage: 2 OVUL, INTRAVAGINAL
     Dates: start: 20190312, end: 20190313
  9. SOLU-MEDROL [Concomitant]
     Active Substance: METHYLPREDNISOLONE SODIUM SUCCINATE
     Indication: Premedication
     Dosage: ONCE BEFORE INFUSION
     Route: 042
     Dates: start: 20190322, end: 20190322
  10. ZANTAC [Concomitant]
     Active Substance: RANITIDINE HYDROCHLORIDE
     Indication: Premedication
     Route: 042
     Dates: start: 20190322, end: 20190322
  11. ZANTAC [Concomitant]
     Active Substance: RANITIDINE HYDROCHLORIDE
     Route: 042
     Dates: start: 20190830, end: 20190830
  12. ACETAMINOPHEN [Concomitant]
     Active Substance: ACETAMINOPHEN
     Indication: Premedication
     Dosage: ONCE BEFORE?INFUSION
     Route: 048
     Dates: start: 20190322, end: 20190322
  13. ACETAMINOPHEN [Concomitant]
     Active Substance: ACETAMINOPHEN
     Route: 048
     Dates: start: 20190830, end: 20190830
  14. ACETAMINOPHEN [Concomitant]
     Active Substance: ACETAMINOPHEN
     Route: 048
     Dates: start: 20200911, end: 20200911
  15. ACETAMINOPHEN [Concomitant]
     Active Substance: ACETAMINOPHEN
     Dosage: ONCE BEFORE INFUSION
     Route: 048
     Dates: start: 20210420, end: 20210420
  16. ACETAMINOPHEN [Concomitant]
     Active Substance: ACETAMINOPHEN
     Dosage: ONCE BEFORE INFUSION
     Route: 048
     Dates: start: 20211228, end: 20211228
  17. ACETAMINOPHEN [Concomitant]
     Active Substance: ACETAMINOPHEN
     Dosage: ONCE BEFORE INFUSION
     Route: 048
     Dates: start: 20220614, end: 20220614
  18. ACETAMINOPHEN [Concomitant]
     Active Substance: ACETAMINOPHEN
     Dosage: ONCE BEFORE INFUSION
     Route: 048
     Dates: start: 20230120, end: 20230120
  19. ACETAMINOPHEN [Concomitant]
     Active Substance: ACETAMINOPHEN
     Dosage: ONCE BEFORE INFUSION
     Route: 048
     Dates: start: 20200327, end: 20200327
  20. AMOXICILLIN [Concomitant]
     Active Substance: AMOXICILLIN
     Indication: Urinary tract infection
     Route: 048
     Dates: start: 20190502, end: 20190505
  21. AMOXICILLIN [Concomitant]
     Active Substance: AMOXICILLIN
     Route: 048
     Dates: start: 20200219, end: 20200223
  22. CIPROFLOXACIN [Concomitant]
     Active Substance: CIPROFLOXACIN
     Indication: Urinary tract infection
     Route: 048
     Dates: start: 20200227, end: 20200304
  23. METHYLPREDNISOLONE [Concomitant]
     Active Substance: METHYLPREDNISOLONE
     Indication: Premedication
     Dosage: ONCE BEFORE INFUSION
     Route: 042
     Dates: start: 20190830, end: 20190830
  24. METHYLPREDNISOLONE [Concomitant]
     Active Substance: METHYLPREDNISOLONE
     Dosage: ONCE BEFORE?INFUSION
     Route: 042
     Dates: start: 20200327, end: 20200327
  25. METHYLPREDNISOLONE [Concomitant]
     Active Substance: METHYLPREDNISOLONE
     Dosage: ONCE BEFORE?INFUSION
     Route: 042
     Dates: start: 20200911, end: 20200911
  26. METHYLPREDNISOLONE [Concomitant]
     Active Substance: METHYLPREDNISOLONE
     Dosage: ONCE BEFORE INFUSION
     Route: 042
     Dates: start: 20210420, end: 20210420
  27. METHYLPREDNISOLONE [Concomitant]
     Active Substance: METHYLPREDNISOLONE
     Dosage: ONCE BEFORE INFUSION
     Route: 042
     Dates: start: 20211228, end: 20211228
  28. METHYLPREDNISOLONE [Concomitant]
     Active Substance: METHYLPREDNISOLONE
     Dosage: ONCE BEFORE INFUSION
     Route: 042
     Dates: start: 20220614, end: 20220614
  29. METHYLPREDNISOLONE [Concomitant]
     Active Substance: METHYLPREDNISOLONE
     Dosage: ONCE BEFORE INFUSION
     Route: 042
     Dates: start: 20230120, end: 20230120
  30. TRIMETON [Concomitant]
     Active Substance: CHLORPHENIRAMINE MALEATE
     Indication: Premedication
     Dosage: ONCE BEFORE?INFUSION
     Route: 042
     Dates: start: 20190322, end: 20190322
  31. TRIMETON [Concomitant]
     Active Substance: CHLORPHENIRAMINE MALEATE
     Dosage: ONCE BEFORE?INFUSION
     Route: 042
     Dates: start: 20190830, end: 20190830
  32. TRIMETON [Concomitant]
     Active Substance: CHLORPHENIRAMINE MALEATE
     Dosage: ONCE BEFORE?INFUSION
     Route: 042
     Dates: start: 20200327, end: 20200327
  33. TRIMETON [Concomitant]
     Active Substance: CHLORPHENIRAMINE MALEATE
     Dosage: ONCE BEFORE?INFUSION
     Route: 042
     Dates: start: 20200911, end: 20200911
  34. TRIMETON [Concomitant]
     Active Substance: CHLORPHENIRAMINE MALEATE
     Dosage: ONCE BEFORE?INFUSION
     Route: 042
     Dates: start: 20210420, end: 20210420
  35. TRIMETON [Concomitant]
     Active Substance: CHLORPHENIRAMINE MALEATE
     Dosage: ONCE BEFORE?INFUSION
     Route: 042
     Dates: start: 20211228, end: 20211228
  36. TRIMETON [Concomitant]
     Active Substance: CHLORPHENIRAMINE MALEATE
     Dosage: ONCE BEFORE?INFUSION
     Route: 042
     Dates: start: 20220614, end: 20220614
  37. TRIMETON [Concomitant]
     Active Substance: CHLORPHENIRAMINE MALEATE
     Dosage: ONCE BEFORE?INFUSION
     Route: 042
     Dates: start: 20230120, end: 20230120
  38. OMEPRAZOLE [Concomitant]
     Active Substance: OMEPRAZOLE
     Indication: Premedication
     Dosage: ONCE BEFORE?INFUSION
     Route: 042
     Dates: start: 20200327, end: 20200327
  39. OMEPRAZOLE [Concomitant]
     Active Substance: OMEPRAZOLE
     Dosage: ONCE BEFORE?INFUSION
     Route: 042
     Dates: start: 20200911, end: 20200911
  40. OMEPRAZOLE [Concomitant]
     Active Substance: OMEPRAZOLE
     Dosage: ONCE BEFORE?INFUSION
     Route: 042
     Dates: start: 20210420, end: 20210420
  41. FOSFOMYCIN TROMETHAMINE [Concomitant]
     Active Substance: FOSFOMYCIN TROMETHAMINE
     Indication: Urinary tract infection
     Route: 048
     Dates: start: 20200821, end: 20200822
  42. FOSFOMYCIN TROMETHAMINE [Concomitant]
     Active Substance: FOSFOMYCIN TROMETHAMINE
     Route: 048
     Dates: start: 20220608, end: 20220609
  43. FOSFOMYCIN TROMETHAMINE [Concomitant]
     Active Substance: FOSFOMYCIN TROMETHAMINE
     Route: 048
     Dates: start: 20221202, end: 20221203
  44. CEFTRIAXONE SODIUM [Concomitant]
     Active Substance: CEFTRIAXONE SODIUM
     Indication: Urinary tract infection
     Route: 030
     Dates: start: 20200827, end: 20200831
  45. CEFTRIAXONE SODIUM [Concomitant]
     Active Substance: CEFTRIAXONE SODIUM
     Indication: Humerus fracture
     Route: 042
     Dates: start: 20211008, end: 20211015
  46. CLOPIDOGREL [Concomitant]
     Active Substance: CLOPIDOGREL BISULFATE
     Route: 048
     Dates: start: 20200311
  47. ENOXAPARIN SODIUM [Concomitant]
     Active Substance: ENOXAPARIN SODIUM
     Indication: Humerus fracture
     Route: 058
  48. TORADOL [Concomitant]
     Active Substance: KETOROLAC TROMETHAMINE
     Indication: Humerus fracture
     Route: 048
     Dates: start: 20211015, end: 20211031
  49. TORADOL [Concomitant]
     Active Substance: KETOROLAC TROMETHAMINE
     Route: 048
     Dates: start: 20211101
  50. AMOXICILLIN [Concomitant]
     Active Substance: AMOXICILLIN
     Indication: Urinary tract infection
     Route: 048
     Dates: start: 20210219, end: 20210223
  51. ZIMOX (ITALY) [Concomitant]
     Indication: Urinary tract infection
     Route: 048
     Dates: start: 20210219, end: 20210224
  52. ACIDIF [Concomitant]
     Indication: Urinary tract infection
     Dosage: 2 CAPSULES
     Route: 048
     Dates: start: 20210311, end: 20210317
  53. BACTRIM [Concomitant]
     Active Substance: SULFAMETHOXAZOLE\TRIMETHOPRIM
     Indication: Urinary tract infection
     Route: 048
     Dates: start: 20210403, end: 20210407
  54. PANTOPRAZOLE [Concomitant]
     Active Substance: PANTOPRAZOLE
     Indication: Premedication
     Dosage: ONCE BEFORE INFUSION
     Route: 042
     Dates: start: 20220614, end: 20220614
  55. PANTOPRAZOLE [Concomitant]
     Active Substance: PANTOPRAZOLE
     Dosage: ONCE BEFORE INFUSION
     Route: 042
     Dates: start: 20230120, end: 20230120

REACTIONS (1)
  - Myocardial infarction [Recovered/Resolved]

NARRATIVE: CASE EVENT DATE: 20190601
